FAERS Safety Report 4449450-8 (Version None)
Quarter: 2004Q3

REPORT INFORMATION
  Report Type: 
  Country: None (occurrence: None)
  Receive Date: 20040913
  Receipt Date: 20040819
  Transmission Date: 20050211
  Serious: Yes (Other)
  Sender: FDA-Public Use
  Company Number: A03200402833

PATIENT
  Age: 82 Year
  Sex: Female
  Weight: 58.9676 kg

DRUGS (14)
  1. PLAVIX [Suspect]
     Dosage: ORAL
     Route: 048
     Dates: end: 20040301
  2. ASPIRIN [Suspect]
     Indication: PROPHYLAXIS
     Dosage: 325 MG QID - ORAL
     Route: 048
     Dates: start: 20040201
  3. ASPIRIN ^BAYER^ - ACETYLSALICYLIC ACID - TABLET - UNIT DOSE : UNKNOWN [Suspect]
     Indication: PROPHYLAXIS
     Dosage: ORAL
     Route: 048
     Dates: start: 20040501
  4. VIT C TAB [Suspect]
     Dosage: ^HIGH DOSE^ - ORAL
     Route: 048
     Dates: start: 20040301
  5. DILTIAZEM HYDROCHLORIDE [Concomitant]
  6. CARVEDILOL [Concomitant]
  7. HYDRALAZINE HCL [Concomitant]
  8. CLONIDINE HCL [Concomitant]
  9. DOXAZOSIN MESYLATE [Concomitant]
  10. ISOSORBIDE [Concomitant]
  11. FUROSEMIDE [Concomitant]
  12. DOCUSATE SODIUM [Concomitant]
  13. VICODIN [Concomitant]
  14. SIMVASTATIN [Concomitant]

REACTIONS (2)
  - DIVERTICULUM [None]
  - LARGE INTESTINAL HAEMORRHAGE [None]
